FAERS Safety Report 6213261-3 (Version None)
Quarter: 2009Q2

REPORT INFORMATION
  Report Type: 
  Country: None (occurrence: None)
  Receive Date: 20090603
  Receipt Date: 20090520
  Transmission Date: 20091009
  Serious: Yes (Hospitalization)
  Sender: FDA-Public Use
  Company Number: US-MERCK-0905USA04085

PATIENT
  Age: 71 Year
  Sex: Female

DRUGS (14)
  1. MAXALT [Suspect]
     Indication: MIGRAINE
     Route: 048
  2. ATACAND [Suspect]
     Route: 065
  3. SEROQUEL [Suspect]
     Route: 065
  4. CYMBALTA [Concomitant]
     Route: 065
  5. MIRAPEX [Concomitant]
     Route: 065
  6. MAVIK [Concomitant]
     Route: 065
  7. LYRICA [Concomitant]
     Route: 065
  8. HYDROCHLOROTHIAZIDE [Concomitant]
     Route: 065
  9. DEPAKOTE [Concomitant]
     Route: 065
  10. POTASSIUM (UNSPECIFIED) [Concomitant]
     Route: 065
  11. SINGULAIR [Concomitant]
     Route: 065
  12. CYANOCOBALAMIN [Concomitant]
     Route: 065
  13. MIDRIN [Concomitant]
     Route: 065
  14. AXERT [Concomitant]
     Route: 065

REACTIONS (2)
  - HYPOTENSION [None]
  - SYNCOPE [None]
